FAERS Safety Report 6463680-5 (Version None)
Quarter: 2009Q4

REPORT INFORMATION
  Report Type: 
  Country: None (occurrence: None)
  Receive Date: 20091201
  Receipt Date: 20091123
  Transmission Date: 20100525
  Serious: Yes (Other)
  Sender: FDA-Public Use
  Company Number: PHEH2009US14722

PATIENT
  Sex: Male

DRUGS (41)
  1. EXJADE [Suspect]
     Dosage: 1500 MG, DAILY
     Route: 048
  2. LASIX [Concomitant]
     Dosage: 60 MG, QD
  3. LASIX [Concomitant]
     Dosage: 80 MG, QD
     Dates: start: 20090313
  4. LASIX [Concomitant]
     Dosage: 60 MG, BID
     Dates: start: 20090619
  5. LASIX [Concomitant]
     Dosage: 40 MG, BID
     Dates: start: 20090918
  6. SPIRONOLACTONE [Concomitant]
     Dosage: 100 MG, BID
  7. SPIRONOLACTONE [Concomitant]
     Dosage: 100 MG, UNK
     Dates: start: 20091102
  8. HYDROCODONE [Concomitant]
     Dosage: 7.5/325 MG QID
  9. HYDROCODONE [Concomitant]
     Dosage: 7.5/325 MG QID
     Dates: start: 20090724
  10. NEULASTA [Concomitant]
     Dosage: UNK
  11. RESTORIL [Concomitant]
     Dosage: 7.5 MG, UNK
  12. ENULOSE [Concomitant]
     Dosage: 2 TSP, TID
  13. CALCIUM W/VITAMIN D NOS [Concomitant]
     Dosage: 600 MG, BID
  14. LACTULOSE [Concomitant]
     Dosage: 30 ML, QD
  15. LACTULOSE [Concomitant]
     Dosage: 30 ML, BID
     Dates: start: 20090313
  16. DILTIAZEM [Concomitant]
     Dosage: 180 MG, BID
  17. DIGOXIN [Concomitant]
     Dosage: 0.25 MG, QD
  18. DIGOXIN [Concomitant]
     Dosage: 0.125 MG, QD
  19. OXYGEN [Concomitant]
     Dosage: 2 L, UNK
  20. OXYGEN [Concomitant]
     Dosage: 3 L, QHS
     Dates: start: 20090313
  21. OXYGEN [Concomitant]
     Dosage: UNK
     Dates: start: 20090417
  22. PAXIL [Concomitant]
     Dosage: 30 MG, UNK
  23. PAXIL [Concomitant]
     Dosage: 3.125 UNK, QD
     Dates: start: 20091102
  24. LOVAZA [Concomitant]
     Dosage: UNK
  25. VITAMIN B COMPLEX CAP [Concomitant]
     Dosage: 1 DF, QD
  26. SIMETHICONE [Concomitant]
     Dosage: 180 MG, BID
  27. SOMA [Concomitant]
     Dosage: 350 MG 1/2-1 TAB HS
  28. SOMA [Concomitant]
     Dosage: UNK
     Dates: start: 20091102
  29. CARVEDILOL [Concomitant]
     Dosage: 3.125 MG, UNK
  30. CARVEDILOL [Concomitant]
     Dosage: 3.125 MG, PRN
     Dates: start: 20090417
  31. CARVEDILOL [Concomitant]
     Dosage: 3.125 MG, BID
     Dates: start: 20091102
  32. TRAMADOL HCL [Concomitant]
     Dosage: 50 MG 1-2 EVERY 6 HOURS
     Route: 048
  33. GLUCOSAMINE [Concomitant]
     Dosage: 2 G, BID
  34. MORPHINE [Concomitant]
     Dosage: 15 MG, Q12H
  35. FENTANYL-100 [Concomitant]
     Dosage: 50 UG, Q72H
  36. FENTANYL-100 [Concomitant]
     Dosage: 100 UG, Q72H
     Dates: start: 20091102
  37. OXYCODONE HCL [Concomitant]
     Dosage: 5 MG 1-2 TABS QID
  38. ZAROXOLYN [Concomitant]
     Dosage: 2.5 MG, UNK
  39. ZAROXOLYN [Concomitant]
     Dosage: 2.5 MG, TUES AND FRI
     Dates: start: 20091102
  40. AMBIEN [Concomitant]
     Dosage: 5 MG, QHS
  41. HALDOL [Concomitant]
     Dosage: 0.5 UNK, 1/2 TO 1

REACTIONS (6)
  - AMMONIA INCREASED [None]
  - CHRONIC HEPATIC FAILURE [None]
  - CONCOMITANT DISEASE PROGRESSION [None]
  - CONFUSIONAL STATE [None]
  - HEPATIC CIRRHOSIS [None]
  - MUSCLE SPASMS [None]
